FAERS Safety Report 5979405-3 (Version None)
Quarter: 2008Q4

REPORT INFORMATION
  Report Type: 
  Country: None (occurrence: None)
  Receive Date: 20081204
  Receipt Date: 20081126
  Transmission Date: 20090506
  Serious: Yes (Hospitalization)
  Sender: FDA-Public Use
  Company Number: TR-ABBOTT-08P-161-0489225-00

PATIENT
  Age: 15 Year
  Sex: Male

DRUGS (2)
  1. SIBUTRAMINE [Suspect]
     Indication: WEIGHT INCREASED
     Dosage: NOT REPORTED
  2. LITHIUM CARBONATE [Concomitant]
     Indication: HYPERSOMNIA-BULIMIA SYNDROME

REACTIONS (1)
  - PSYCHOTIC DISORDER [None]
